FAERS Safety Report 5523959-8 (Version None)
Quarter: 2007Q4

REPORT INFORMATION
  Report Type: 
  Country: None (occurrence: None)
  Receive Date: 20071121
  Receipt Date: 20071113
  Transmission Date: 20080405
  Serious: Yes (Death)
  Sender: FDA-Public Use
  Company Number: DE-ABBOTT-07P-062-0419904-00

PATIENT
  Sex: Female

DRUGS (2)
  1. HUMIRA [Suspect]
     Indication: RHEUMATOID ARTHRITIS
     Route: 058
     Dates: start: 20061220, end: 20070904
  2. GLUCOSTEROIDS [Concomitant]
     Indication: RHEUMATOID ARTHRITIS

REACTIONS (2)
  - DEEP VEIN THROMBOSIS [None]
  - MULTI-ORGAN FAILURE [None]
